FAERS Safety Report 5156823-7 (Version None)
Quarter: 2006Q4

REPORT INFORMATION
  Report Type: 
  Country: None (occurrence: None)
  Receive Date: 20061115
  Receipt Date: 20061102
  Transmission Date: 20070319
  Serious: Yes (Hospitalization)
  Sender: FDA-Public Use
  Company Number: HQWYE196202NOV06

PATIENT
  Sex: Female

DRUGS (1)
  1. PANTOPRAZOLE SODIUM [Suspect]
     Indication: GASTROOESOPHAGEAL REFLUX DISEASE
     Dosage: SEE IMAGE

REACTIONS (6)
  - CHILLS [None]
  - CONTUSION [None]
  - HAEMORRHAGE [None]
  - LEUKAEMIA [None]
  - PLATELET COUNT DECREASED [None]
  - PYREXIA [None]
